FAERS Safety Report 16318558 (Version 1)
Quarter: 2019Q2

REPORT INFORMATION
  Report Type: Spontaneous
  Country: ES (occurrence: ES)
  Receive Date: 20190516
  Receipt Date: 20190516
  Transmission Date: 20190711
  Serious: Yes (Hospitalization)
  Sender: FDA-Public Use
  Company Number: ES-TEVA-2019-ES-1049167

PATIENT
  Age: 78 Year
  Sex: Male

DRUGS (6)
  1. DAXAS 500 MICROGRAMOS COMPRIMIDOS RECUBIERTOS CON PELICULA, 30 COMPRIM [Concomitant]
     Active Substance: ROFLUMILAST
     Indication: CHRONIC OBSTRUCTIVE PULMONARY DISEASE
     Dosage: 500 MG PER 1 DAY
     Route: 048
  2. RIFAMPICINA (2273A) [Suspect]
     Active Substance: RIFAMPIN
     Indication: MYCOBACTERIAL INFECTION
     Dosage: 600 MG PER 1DAY
     Route: 048
     Dates: start: 20180926, end: 20181221
  3. ETHAMBUTOL [Suspect]
     Active Substance: ETHAMBUTOL HYDROCHLORIDE
     Indication: MYCOBACTERIAL INFECTION
     Dosage: 1.2 GRAM PER 1 DAY
     Route: 048
     Dates: start: 20180926, end: 20181221
  4. INCRUSE ELLIPTA 55MCG POLVO PARA INHALACION UNIDOSIS 30 DOSIS [Concomitant]
     Indication: CHRONIC OBSTRUCTIVE PULMONARY DISEASE
     Dosage: 50MG PER 1DAY
     Route: 055
  5. CLARITROMICINA (967A) [Suspect]
     Active Substance: CLARITHROMYCIN
     Indication: MYCOBACTERIAL INFECTION
     Dosage: 1GRAM FOR 1 DAY
     Route: 048
     Dates: start: 20180926, end: 20181221
  6. RELVAR ELLIPTA 92MCG/22MCG POLVO PARA INHALACION  (UNIDOSIS) 30 DOSIS [Concomitant]
     Indication: CHRONIC OBSTRUCTIVE PULMONARY DISEASE
     Dosage: 22 MICROGRAM PER 1 DAY
     Route: 055

REACTIONS (1)
  - Eosinophilia [Recovered/Resolved]

NARRATIVE: CASE EVENT DATE: 20181219
